FAERS Safety Report 10404383 (Version 1)
Quarter: 2014Q3

REPORT INFORMATION
  Report Type: Report from Study
  Country: KR (occurrence: KR)
  Receive Date: 20140823
  Receipt Date: 20140823
  Transmission Date: 20150326
  Serious: No
  Sender: FDA-Public Use
  Company Number: PHHY2014KR104634

PATIENT
  Age: 72 Year
  Sex: Male

DRUGS (44)
  1. DESOWEN [Concomitant]
     Active Substance: DESONIDE
     Indication: RASH
     Dosage: 120 ML, UNK
     Route: 061
     Dates: start: 20140516
  2. EPINASTINE [Concomitant]
     Active Substance: EPINASTINE
     Indication: RASH
     Dosage: 20 MG, UNK
     Route: 048
     Dates: start: 20140516, end: 20140530
  3. LEVOCETIRIZINE HYDROCHLORIDE [Concomitant]
     Active Substance: LEVOCETIRIZINE HYDROCHLORIDE
     Indication: RASH
     Dosage: 5 MG, UNK
     Route: 048
     Dates: start: 20140516, end: 20140530
  4. ACETYL CYSTEINE SENJU [Concomitant]
     Indication: PROPHYLAXIS
     Dosage: 1200 MG, UNK
     Route: 048
     Dates: start: 20140709, end: 20140713
  5. DUO CLINDACIN [Concomitant]
     Indication: RASH
     Dosage: 15 ML, UNK
     Route: 061
     Dates: start: 20140530, end: 20140620
  6. HALF SALINE [Concomitant]
     Indication: DEHYDRATION
  7. RANITIDINE BISMUTH CITRATE [Concomitant]
     Active Substance: RANITIDINE BISMUTH CITRATE
     Indication: PROPHYLAXIS
     Dosage: 300 MG, UNK
     Route: 048
     Dates: start: 20120130
  8. APIDRA [Concomitant]
     Active Substance: INSULIN GLULISINE
     Indication: DIABETES MELLITUS MANAGEMENT
     Dosage: 18 IU, UNK
     Route: 058
     Dates: start: 20140406, end: 20140407
  9. GLICLAZIDE [Concomitant]
     Active Substance: GLICLAZIDE
     Indication: DIABETES MELLITUS MANAGEMENT
     Dosage: 30 MG, UNK
     Route: 048
     Dates: start: 20140409
  10. LACTICARE ZEMAGIS [Concomitant]
     Indication: RASH
     Dosage: 20 MG, UNK
     Route: 061
     Dates: start: 20140502, end: 20140516
  11. LANTUS [Concomitant]
     Active Substance: INSULIN GLARGINE
     Indication: DIABETES MELLITUS MANAGEMENT
     Dosage: 8 IU, UNK
     Route: 058
     Dates: start: 20140405, end: 20140406
  12. MEQUITAZINE [Concomitant]
     Active Substance: MEQUITAZINE
     Indication: PRURITUS GENERALISED
     Dosage: 10 MG, UNK
     Route: 048
     Dates: start: 20130715, end: 20140516
  13. POTASSIUM PHOSPHATE [Concomitant]
     Active Substance: POTASSIUM PHOSPHATE
     Indication: BLOOD PHOSPHORUS
     Dosage: 20 ML, UNK
     Route: 042
     Dates: start: 20140410, end: 20140410
  14. ETIZOLAM [Concomitant]
     Active Substance: ETIZOLAM
     Indication: PROPHYLAXIS
     Dosage: 0.5 MG, UNK
     Route: 048
     Dates: start: 20130819
  15. FUROSEMIDE. [Concomitant]
     Active Substance: FUROSEMIDE
     Indication: PROPHYLAXIS
     Dosage: 40 MG, UNK
     Route: 048
     Dates: start: 20140502, end: 20140530
  16. LANTUS [Concomitant]
     Active Substance: INSULIN GLARGINE
     Dosage: 10 IU, UNK
     Route: 058
     Dates: start: 20140407, end: 20140407
  17. PETHIDINE HYDROCHLORIDE [Concomitant]
     Active Substance: MEPERIDINE
     Indication: PAIN
  18. PROPOFOL. [Concomitant]
     Active Substance: PROPOFOL
     Indication: COLONOSCOPY
     Dosage: 110 MG, UNK
     Route: 042
     Dates: start: 20140708, end: 20140708
  19. AMN107 [Suspect]
     Active Substance: NILOTINIB
     Indication: CHRONIC MYELOID LEUKAEMIA
     Dosage: 800 MG, PER DAY
     Route: 048
     Dates: start: 20140402
  20. ALLOPURINOL. [Concomitant]
     Active Substance: ALLOPURINOL
     Indication: PROPHYLAXIS
     Dosage: 100 MG, UNK
     Route: 048
     Dates: start: 20140403, end: 20140415
  21. CALCIUM GLUCONATE. [Concomitant]
     Active Substance: CALCIUM GLUCONATE
     Dosage: 20 ML, UNK
     Route: 042
     Dates: start: 20140410, end: 20140410
  22. COLYTE                             /00751601/ [Concomitant]
     Indication: COLONOSCOPY
     Dosage: 4 L, UNK
     Route: 048
     Dates: start: 20140707, end: 20140708
  23. ERDOSTEINE [Concomitant]
     Active Substance: ERDOSTEINE
     Indication: PLEURAL EFFUSION
     Dosage: 600 MG, UNK
     Route: 048
     Dates: start: 20140325
  24. FUROSEMIDE. [Concomitant]
     Active Substance: FUROSEMIDE
     Dosage: 80 MG, UNK
     Route: 048
     Dates: start: 20140325, end: 20140408
  25. HALF SALINE [Concomitant]
     Indication: PYREXIA
     Dosage: 1 L, UNK
     Route: 042
     Dates: start: 20140403, end: 20140404
  26. PETHIDINE HYDROCHLORIDE [Concomitant]
     Active Substance: MEPERIDINE
     Indication: ASPIRATION PLEURAL CAVITY
     Dosage: 25 MG, UNK
     Route: 030
     Dates: start: 20140402, end: 20140402
  27. VILDAGLIPTIN [Concomitant]
     Active Substance: VILDAGLIPTIN
     Indication: DIABETES MELLITUS MANAGEMENT
     Dosage: 50 MG, UNK
     Route: 048
     Dates: start: 20140409
  28. ACETYL CYSTEINE SENJU [Concomitant]
     Indication: PROPHYLAXIS
     Dosage: 600 MG, UNK
     Route: 048
     Dates: start: 20140204, end: 20140415
  29. AMOXICILLIN. [Concomitant]
     Active Substance: AMOXICILLIN
     Indication: ANTIBIOTIC PROPHYLAXIS
     Dosage: 1875 MG, UNK
     Route: 048
     Dates: start: 20140625, end: 20140701
  30. HYDROXYZINE HYDROCHLORIDE. [Concomitant]
     Active Substance: HYDROXYZINE HYDROCHLORIDE
     Indication: RASH
     Dosage: 10 MG, UNK
     Route: 048
     Dates: start: 20140516, end: 20140721
  31. PROPACETAMOL HYDROCHLORIDE [Concomitant]
     Active Substance: PROPACETAMOL HYDROCHLORIDE
     Indication: PYREXIA
     Dosage: 1 G, UNK
     Route: 042
     Dates: start: 20140404, end: 20140405
  32. SODIUM CHLORIDE. [Concomitant]
     Active Substance: SODIUM CHLORIDE
     Indication: INFUSION
     Dosage: 500 ML, UNK
     Route: 042
     Dates: start: 20140707, end: 20140711
  33. TALNIFLUMATE [Concomitant]
     Active Substance: TALNIFLUMATE
     Indication: ANALGESIC THERAPY
     Dosage: 1110 MG, UNK
     Route: 048
     Dates: start: 20140625, end: 20140701
  34. APIDRA [Concomitant]
     Active Substance: INSULIN GLULISINE
     Dosage: 24 IU, UNK
     Dates: start: 20140408, end: 20140408
  35. FUROSEMIDE. [Concomitant]
     Active Substance: FUROSEMIDE
     Indication: DIURETIC THERAPY
     Dosage: 20 MG, UNK
     Route: 048
     Dates: start: 20140531, end: 20140614
  36. FUROSEMIDE. [Concomitant]
     Active Substance: FUROSEMIDE
     Indication: PLEURAL EFFUSION
     Dosage: 40 MG, UNK
     Route: 048
     Dates: start: 20140710, end: 20140714
  37. FUROSEMIDE. [Concomitant]
     Active Substance: FUROSEMIDE
     Indication: TESTICULAR SWELLING
     Dosage: 80 MG, UNK
     Route: 048
     Dates: start: 20140410, end: 20140502
  38. TYLENOL ER [Concomitant]
     Active Substance: ACETAMINOPHEN
     Indication: PYREXIA
     Dosage: 650 MG, UNK
     Route: 048
     Dates: start: 20140403, end: 20140403
  39. BEPOTASTINE [Concomitant]
     Active Substance: BEPOTASTINE
     Indication: PRURITUS GENERALISED
     Dosage: 20 MG, UNK
     Route: 048
     Dates: start: 20120903, end: 20140516
  40. LANTUS [Concomitant]
     Active Substance: INSULIN GLARGINE
     Dosage: 14 IU, UNK
     Route: 058
     Dates: start: 20140408, end: 20140408
  41. MIDAZOLAM [Concomitant]
     Active Substance: MIDAZOLAM\MIDAZOLAM HYDROCHLORIDE
     Indication: COLONOSCOPY
     Dosage: 3 MG, UNK
     Route: 042
     Dates: start: 20140708, end: 20140708
  42. NOVORAPID [Concomitant]
     Active Substance: INSULIN ASPART
     Indication: DIABETES MELLITUS MANAGEMENT
     Dosage: 6 IU, UNK
     Route: 058
     Dates: start: 20140405, end: 20140405
  43. POTASSIUM CHLORIDE. [Concomitant]
     Active Substance: POTASSIUM CHLORIDE
     Indication: HYPOKALAEMIA
     Dosage: 3600 MG, UNK
     Route: 048
     Dates: start: 20140409, end: 20140410
  44. STILLEN [Concomitant]
     Indication: PROPHYLAXIS
     Dosage: 180 MG, UNK
     Route: 048
     Dates: start: 20140625, end: 20140701

REACTIONS (1)
  - Pyrexia [Recovered/Resolved]

NARRATIVE: CASE EVENT DATE: 20140403
